FAERS Safety Report 9334335 (Version 1)
Quarter: 2013Q2

REPORT INFORMATION
  Report Type: Spontaneous
  Country: US (occurrence: US)
  Receive Date: 20130606
  Receipt Date: 20130606
  Transmission Date: 20140414
  Serious: No
  Sender: FDA-Public Use
  Company Number: US-AMGEN-USASP2013019184

PATIENT
  Age: 75 Year
  Sex: Female

DRUGS (3)
  1. PROLIA [Suspect]
     Indication: OSTEOPOROSIS POSTMENOPAUSAL
     Dosage: UNK
     Dates: start: 20130122
  2. PROLIA [Suspect]
  3. IMITREX                            /01044801/ [Concomitant]

REACTIONS (8)
  - Headache [Recovered/Resolved]
  - Joint swelling [Unknown]
  - Hunger [Unknown]
  - Feeling abnormal [Unknown]
  - Arthralgia [Unknown]
  - Fatigue [Unknown]
  - Flatulence [Unknown]
  - Constipation [Unknown]
